FAERS Safety Report 11889991 (Version 2)
Quarter: 2016Q1

REPORT INFORMATION
  Report Type: Spontaneous
  Country: BR (occurrence: BR)
  Receive Date: 20160105
  Receipt Date: 20160119
  Transmission Date: 20160526
  Serious: Yes (Other)
  Sender: FDA-Public Use
  Company Number: PHHY2015BR172139

PATIENT
  Age: 23 Year
  Sex: Female
  Weight: 73 kg

DRUGS (2)
  1. METIDOPA [Concomitant]
     Indication: HYPERTENSION
     Dosage: 500 MG, UNK
     Route: 048
     Dates: start: 2013
  2. GILENYA [Suspect]
     Active Substance: FINGOLIMOD HYDROCHLORIDE
     Indication: MULTIPLE SCLEROSIS
     Dosage: 1 DF (ONE CAPSULE OF GILENYA 0.5 MG 28 CAPSULES), QD
     Route: 048
     Dates: start: 2012

REACTIONS (2)
  - Maternal exposure during pregnancy [Unknown]
  - Habitual abortion [Unknown]

NARRATIVE: CASE EVENT DATE: 201308
